FAERS Safety Report 6518012-0 (Version None)
Quarter: 2009Q4

REPORT INFORMATION
  Report Type: 
  Country: None (occurrence: None)
  Receive Date: 20091223
  Receipt Date: 20091223
  Transmission Date: 20100525
  Serious: Yes (Other)
  Sender: FDA-Public Use
  Company Number: None

PATIENT
  Sex: Female
  Weight: 73.4827 kg

DRUGS (1)
  1. LEVOTHROID 0.025MG [Suspect]
     Indication: HYPOTHYROIDISM
     Dosage: 0.025MG DAILY PO
     Route: 048
     Dates: start: 20080927, end: 20081003

REACTIONS (3)
  - FATIGUE [None]
  - FEELING ABNORMAL [None]
  - HEADACHE [None]
